FAERS Safety Report 7622414-9 (Version None)
Quarter: 2011Q3

REPORT INFORMATION
  Report Type: 
  Country: None (occurrence: None)
  Receive Date: 20110720
  Receipt Date: 20100723
  Transmission Date: 20111222
  Serious: No
  Sender: FDA-Public Use
  Company Number: US-MYLANLABS-2010S1013533

PATIENT
  Sex: Female

DRUGS (3)
  1. DEPAKOTE [Interacting]
     Indication: BORDERLINE PERSONALITY DISORDER
  2. CITALOPRAM HYDROBROMIDE [Interacting]
     Indication: BORDERLINE PERSONALITY DISORDER
  3. TRAMADOL HCL [Suspect]

REACTIONS (4)
  - ANXIETY [None]
  - PARANOIA [None]
  - DRUG INTERACTION [None]
  - DRUG EFFECT DECREASED [None]
